FAERS Safety Report 8876412 (Version 2)
Quarter: 2012Q4

REPORT INFORMATION
  Report Type: 
  Country: US (occurrence: US)
  Receive Date: 20121031
  Receipt Date: 20121126
  Transmission Date: 20130627
  Serious: No
  Sender: FDA-Public Use
  Company Number: US-VERTEX PHARMACEUTICAL INC.-2012-023713

PATIENT
  Age: 59 Year
  Sex: Male

DRUGS (6)
  1. INCIVEK [Suspect]
     Indication: HEPATITIS C
     Route: 048
  2. ATENOLOL [Concomitant]
  3. MILK THISTLE [Concomitant]
  4. METHADONE [Concomitant]
  5. ADOVAIR [Concomitant]
  6. OXYCODONE [Concomitant]

REACTIONS (3)
  - Loose tooth [Not Recovered/Not Resolved]
  - Dental caries [Not Recovered/Not Resolved]
  - Drug ineffective [Unknown]
